FAERS Safety Report 8789525 (Version 1)
Quarter: 2012Q4

REPORT INFORMATION
  Report Type: Spontaneous
  Country: US (occurrence: None)
  Receive Date: 20120910
  Receipt Date: 20120910
  Transmission Date: 20130627
  Serious: Yes (Life-Threatening, Hospitalization)
  Sender: FDA-Public Use
  Company Number: None

PATIENT
  Age: 55 Year
  Sex: Male
  Weight: 79 kg

DRUGS (1)
  1. VANCOMYCIN [Suspect]
     Indication: ENTEROCOCCAL INFECTION
     Route: 042

REACTIONS (3)
  - Renal failure acute [None]
  - Confusional state [None]
  - Dyspnoea [None]
